FAERS Safety Report 18245091 (Version 1)
Quarter: 2020Q3

REPORT INFORMATION
  Report Type: Spontaneous
  Country: GB (occurrence: GB)
  Receive Date: 20200909
  Receipt Date: 20200909
  Transmission Date: 20201103
  Serious: Yes (Other)
  Sender: FDA-Public Use
  Company Number: GB-TEVA-2020-GB-1825448

PATIENT
  Age: 26 Year
  Sex: Female

DRUGS (1)
  1. AJOVY [Suspect]
     Active Substance: FREMANEZUMAB-VFRM
     Indication: PRODUCT USED FOR UNKNOWN INDICATION
     Route: 065

REACTIONS (6)
  - Fall [Unknown]
  - Syncope [Unknown]
  - Migraine [Unknown]
  - Joint dislocation [Unknown]
  - Seizure [Unknown]
  - Malaise [Unknown]

NARRATIVE: CASE EVENT DATE: 20200701
